FAERS Safety Report 18317863 (Version 2)
Quarter: 2021Q1

REPORT INFORMATION
  Report Type: Spontaneous
  Country: AU (occurrence: AU)
  Receive Date: 20200928
  Receipt Date: 20210126
  Transmission Date: 20210419
  Serious: Yes (Other)
  Sender: FDA-Public Use
  Company Number: AU-B.I. PHARMACEUTICALS,INC./RIDGEFIELD-2020-BI-048914

PATIENT
  Sex: Male

DRUGS (3)
  1. MICARDIS [Suspect]
     Active Substance: TELMISARTAN
     Dates: start: 2010, end: 2020
  2. MICARDIS PLUS [Suspect]
     Active Substance: HYDROCHLOROTHIAZIDE\TELMISARTAN
     Indication: PRODUCT USED FOR UNKNOWN INDICATION
     Dosage: 80MG +12.5
     Dates: start: 2020, end: 202012
  3. MICARDIS [Suspect]
     Active Substance: TELMISARTAN
     Indication: PRODUCT USED FOR UNKNOWN INDICATION
     Dates: start: 2008

REACTIONS (9)
  - Weight decreased [Unknown]
  - Blood pressure inadequately controlled [Unknown]
  - Vision blurred [Unknown]
  - Depression [Recovered/Resolved]
  - Fear [Recovered/Resolved]
  - Dizziness [Unknown]
  - Nasal dryness [Unknown]
  - Hypertension [Not Recovered/Not Resolved]
  - Suicidal ideation [Recovered/Resolved]
